FAERS Safety Report 5383892-1 (Version None)
Quarter: 2007Q3

REPORT INFORMATION
  Report Type: 
  Country: None (occurrence: None)
  Receive Date: 20070711
  Receipt Date: 20070702
  Transmission Date: 20080115
  Serious: Yes (Other)
  Sender: FDA-Public Use
  Company Number: BR-JNJFOC-20070701602

PATIENT
  Age: 1 Month
  Sex: Male
  Weight: 4 kg

DRUGS (2)
  1. DAKTARIN GEL [Suspect]
     Route: 048
  2. DAKTARIN GEL [Suspect]
     Indication: ORAL CANDIDIASIS
     Route: 048

REACTIONS (2)
  - FOAMING AT MOUTH [None]
  - MEDICATION ERROR [None]
